FAERS Safety Report 4539410-0 (Version None)
Quarter: 2004Q4

REPORT INFORMATION
  Report Type: 
  Country: None (occurrence: None)
  Receive Date: 20041222
  Receipt Date: 20041213
  Transmission Date: 20050328
  Serious: Yes (Disabling)
  Sender: FDA-Public Use
  Company Number: 2004GB03085

PATIENT
  Age: 56 Year
  Sex: Male
  Weight: 107 kg

DRUGS (9)
  1. ATENOLOL [Suspect]
     Indication: HYPERTENSION
     Dosage: 50 MG PO
     Route: 048
     Dates: start: 20041101, end: 20041106
  2. SELEGILINE HCL [Concomitant]
  3. ENTACAPONE [Concomitant]
  4. ROPINIROLE [Concomitant]
  5. AMANTADINE [Concomitant]
  6. MIANSERIN [Concomitant]
  7. OMEPRAZOLE [Concomitant]
  8. SILDENAFIL [Concomitant]
  9. IBUPROFEN [Concomitant]

REACTIONS (2)
  - CONDITION AGGRAVATED [None]
  - PARKINSON'S DISEASE [None]
